FAERS Safety Report 22147964 (Version 1)
Quarter: 2023Q1

REPORT INFORMATION
  Report Type: Spontaneous
  Country: US (occurrence: US)
  Receive Date: 20230328
  Receipt Date: 20230328
  Transmission Date: 20230418
  Serious: Yes (Other)
  Sender: FDA-Public Use
  Company Number: US-APIL-2309697US

PATIENT
  Sex: Female

DRUGS (2)
  1. LEXAPRO [Suspect]
     Active Substance: ESCITALOPRAM OXALATE
     Indication: Depression
     Dosage: 10 MG
     Dates: start: 20230311
  2. LEXAPRO [Suspect]
     Active Substance: ESCITALOPRAM OXALATE
     Indication: Anxiety

REACTIONS (5)
  - Intentional self-injury [Unknown]
  - Suicidal ideation [Recovering/Resolving]
  - Violence-related symptom [Unknown]
  - Anger [Recovering/Resolving]
  - Aggression [Unknown]

NARRATIVE: CASE EVENT DATE: 20230313
